FAERS Safety Report 7994281-5 (Version None)
Quarter: 2011Q4

REPORT INFORMATION
  Report Type: 
  Country: None (occurrence: None)
  Receive Date: 20111220
  Receipt Date: 20111216
  Transmission Date: 20120403
  Serious: Yes (Other)
  Sender: FDA-Public Use
  Company Number: US-AMGEN-USASP2011067230

PATIENT
  Age: 61 Year
  Sex: Female

DRUGS (1)
  1. NPLATE [Suspect]
     Indication: IDIOPATHIC THROMBOCYTOPENIC PURPURA
     Dates: start: 20110601

REACTIONS (3)
  - PLATELET MORPHOLOGY ABNORMAL [None]
  - HAEMORRHAGE [None]
  - PLATELET COUNT ABNORMAL [None]
